FAERS Safety Report 25792315 (Version 1)
Quarter: 2025Q3

REPORT INFORMATION
  Report Type: Spontaneous
  Country: CA (occurrence: CA)
  Receive Date: 20250911
  Receipt Date: 20250911
  Transmission Date: 20251020
  Serious: Yes (Life-Threatening, Hospitalization)
  Sender: PFIZER
  Company Number: CA-PFIZER INC-202500178531

PATIENT
  Age: 10 Year
  Sex: Female
  Weight: 55 kg

DRUGS (3)
  1. SIROLIMUS [Suspect]
     Active Substance: SIROLIMUS
     Indication: Immunosuppression
  2. PENTAMIDINE ISETHIONATE [Suspect]
     Active Substance: PENTAMIDINE ISETHIONATE
     Indication: Antifungal prophylaxis
  3. RUXOLITINIB [Suspect]
     Active Substance: RUXOLITINIB
     Indication: Immunosuppression

REACTIONS (7)
  - Acute respiratory distress syndrome [Recovered/Resolved]
  - Fatigue [Recovered/Resolved]
  - Febrile bone marrow aplasia [Recovered/Resolved]
  - Hypotension [Recovered/Resolved]
  - Pneumocystis test positive [Recovered/Resolved]
  - Sepsis [Recovered/Resolved]
  - Septic shock [Recovered/Resolved]
